FAERS Safety Report 9087444 (Version 1)
Quarter: 2013Q1

REPORT INFORMATION
  Report Type: Report from Study
  Country: US (occurrence: US)
  Receive Date: 20130130
  Receipt Date: 20130130
  Transmission Date: 20140127
  Serious: No
  Sender: FDA-Public Use
  Company Number: US-ABBOTT-12P-163-0978765-00

PATIENT
  Sex: Female
  Weight: 59.02 kg

DRUGS (5)
  1. HUMIRA [Suspect]
     Indication: CROHN^S DISEASE
     Route: 058
  2. HUMIRA [Suspect]
     Indication: COLITIS ULCERATIVE
  3. IMURAN (NON-ABBOTT) [Concomitant]
     Indication: COLITIS ULCERATIVE
  4. LIALDA [Concomitant]
     Indication: COLITIS ULCERATIVE
  5. MULTIVITAMIN (NON-ABBOTT) [Concomitant]
     Indication: VITAMIN SUPPLEMENTATION

REACTIONS (3)
  - Off label use [Unknown]
  - Colitis ulcerative [Unknown]
  - Crohn^s disease [Not Recovered/Not Resolved]
